FAERS Safety Report 5611423-7 (Version None)
Quarter: 2008Q1

REPORT INFORMATION
  Report Type: 
  Country: None (occurrence: None)
  Receive Date: 20080201
  Receipt Date: 20080121
  Transmission Date: 20080703
  Serious: Yes (Hospitalization)
  Sender: FDA-Public Use
  Company Number: US-PFIZER INC-2008005888

PATIENT
  Sex: Female
  Weight: 101.2 kg

DRUGS (6)
  1. AROMASIN [Suspect]
     Indication: BREAST CANCER
     Route: 048
  2. TOPROL-XL [Concomitant]
     Route: 048
  3. LIPITOR [Concomitant]
     Route: 048
     Dates: start: 20040401
  4. MICARDIS [Concomitant]
     Route: 048
     Dates: start: 20050501
  5. CALCIUM CITRATE [Concomitant]
     Route: 048
     Dates: start: 20060123
  6. COENZYME Q10 [Concomitant]
     Route: 048
     Dates: start: 20051001

REACTIONS (1)
  - PULMONARY EMBOLISM [None]
